FAERS Safety Report 17821301 (Version 1)
Quarter: 2020Q2

REPORT INFORMATION
  Report Type: Spontaneous
  Country: TW (occurrence: TW)
  Receive Date: 20200525
  Receipt Date: 20200525
  Transmission Date: 20200714
  Serious: Yes (Hospitalization, Other)
  Sender: FDA-Public Use
  Company Number: TW-ACCORD-183127

PATIENT
  Age: 27 Year
  Sex: Female

DRUGS (6)
  1. QUETIAPINE. [Suspect]
     Active Substance: QUETIAPINE
     Dosage: AMOUNT OF FLURAZEPAM, CLONAZEPAM, FLUNITRAZEPAM, QUETIAPINE, FLUPENTIXOL, AND PROPRANOLOL.
  2. PROPRANOLOL [Suspect]
     Active Substance: PROPRANOLOL HYDROCHLORIDE
     Dosage: UNKNOWN AMOUNT OF FLURAZEPAM, CLONAZEPAM, FLUNITRAZEPAM, QUETIAPINE, FLUPENTIXOL, AND PROPRANOLOL.
  3. CLONAZEPAM. [Suspect]
     Active Substance: CLONAZEPAM
     Dosage: UNKNOWN AMOUNT OF FLURAZEPAM, CLONAZEPAM, FLUNITRAZEPAM, QUETIAPINE, FLUPENTIXOL, AND PROPRANOLOL.
  4. FLUNITRAZEPAM [Suspect]
     Active Substance: FLUNITRAZEPAM
     Dosage: UNKNOWN AMOUNT OF FLURAZEPAM, CLONAZEPAM, FLUNITRAZEPAM, QUETIAPINE, FLUPENTIXOL, AND PROPRANOLOL.
  5. FLUPENTIXOL/FLUPENTIXOL DECANOATE/FLUPENTIXOL DIHYDROCHLORIDE [Suspect]
     Active Substance: FLUPENTIXOL
     Dosage: UNKNOWN AMOUNT OF FLURAZEPAM, CLONAZEPAM, FLUNITRAZEPAM, QUETIAPINE, FLUPENTIXOL, AND PROPRANOLOL.
  6. FLURAZEPAM [Suspect]
     Active Substance: FLURAZEPAM HYDROCHLORIDE
     Dosage: UNKNOWN AMOUNT OF FLURAZEPAM, CLONAZEPAM, FLUNITRAZEPAM, QUETIAPINE, FLUPENTIXOL, AND PROPRANOLOL.

REACTIONS (8)
  - Thalamic infarction [Unknown]
  - Brain oedema [Unknown]
  - Intentional overdose [Unknown]
  - Suicide attempt [Unknown]
  - Leukocytosis [Unknown]
  - Blood creatinine increased [Unknown]
  - Brain stem stroke [Unknown]
  - Altered state of consciousness [Unknown]
